FAERS Safety Report 23396341 (Version 1)
Quarter: 2024Q1

REPORT INFORMATION
  Report Type: Spontaneous
  Country: US (occurrence: None)
  Receive Date: 20240111
  Receipt Date: 20240111
  Transmission Date: 20240409
  Serious: Yes (Other)
  Sender: FDA-Public Use
  Company Number: None

PATIENT
  Age: 63 Year
  Sex: Female

DRUGS (10)
  1. AMBRISENTAN [Suspect]
     Active Substance: AMBRISENTAN
     Indication: Pulmonary arterial hypertension
     Dosage: FREQUENCY : DAILY;?
     Route: 048
     Dates: start: 20140128
  2. AMBRISENTAN [Suspect]
     Active Substance: AMBRISENTAN
     Indication: Heritable pulmonary arterial hypertension
  3. TADALAFIL [Concomitant]
  4. CLOPIDOGREL [Concomitant]
     Active Substance: CLOPIDOGREL BISULFATE
  5. OMEPRAZOLE [Concomitant]
  6. LEVOTHYROXINE [Concomitant]
  7. ROSUVASTATIN [Concomitant]
  8. ALBUTEROL HFA [Concomitant]
  9. EPIPEN [Concomitant]
     Active Substance: EPINEPHRINE
  10. OXYGEN SUPPLEMENTAL [Concomitant]

REACTIONS (4)
  - Upper respiratory tract infection [None]
  - Conjunctivitis [None]
  - Eye discharge [None]
  - Viral infection [None]

NARRATIVE: CASE EVENT DATE: 20240107
